FAERS Safety Report 7389574-9 (Version None)
Quarter: 2011Q2

REPORT INFORMATION
  Report Type: 
  Country: None (occurrence: None)
  Receive Date: 20110401
  Receipt Date: 20110329
  Transmission Date: 20111010
  Serious: Yes (Death)
  Sender: FDA-Public Use
  Company Number: PHHY2011US06182

PATIENT
  Sex: Male

DRUGS (4)
  1. EXJADE [Suspect]
     Indication: MYELODYSPLASTIC SYNDROME
     Dosage: 250 MG, DAILY
     Route: 048
     Dates: start: 20101227
  2. DICLOFENAC SODIUM [Concomitant]
     Indication: ARTHRALGIA
     Dosage: 75 MG, BID
     Dates: start: 20090611
  3. XANAX [Concomitant]
     Indication: ANXIETY
     Dosage: 1 MG, BID
     Route: 048
  4. LEVOTHYROXINE SODIUM [Concomitant]
     Indication: HYPOTHYROIDISM
     Dosage: 100 MG, DAILY
     Route: 048
     Dates: start: 20050101

REACTIONS (4)
  - EPISTAXIS [None]
  - HYPOTENSION [None]
  - CARDIAC ARREST [None]
  - DIZZINESS [None]
